FAERS Safety Report 6226364-4 (Version None)
Quarter: 2009Q2

REPORT INFORMATION
  Report Type: 
  Country: None (occurrence: None)
  Receive Date: 20090612
  Receipt Date: 20090309
  Transmission Date: 20091009
  Serious: Yes (Hospitalization)
  Sender: FDA-Public Use
  Company Number: 960118-107010050

PATIENT
  Age: 16 Year
  Sex: Male

DRUGS (2)
  1. GRISEOFULVIN [Suspect]
     Route: 048
  2. GRISEOFULVIN [Suspect]
     Indication: TINEA CAPITIS
     Route: 048

REACTIONS (18)
  - ALANINE AMINOTRANSFERASE INCREASED [None]
  - ANAEMIA [None]
  - ANTINUCLEAR ANTIBODY POSITIVE [None]
  - ARTHRALGIA [None]
  - ASPARTATE AMINOTRANSFERASE INCREASED [None]
  - COMPLEMENT FACTOR C3 DECREASED [None]
  - COMPLEMENT FACTOR C4 DECREASED [None]
  - CUTANEOUS LUPUS ERYTHEMATOSUS [None]
  - FACE OEDEMA [None]
  - GLOMERULONEPHRITIS MEMBRANOUS [None]
  - HAEMATURIA [None]
  - HEADACHE [None]
  - HYPERCHOLESTEROLAEMIA [None]
  - LEUKOPENIA [None]
  - LYMPHADENOPATHY [None]
  - MYALGIA [None]
  - PROTEINURIA [None]
  - PYREXIA [None]
